FAERS Safety Report 6079756-0 (Version None)
Quarter: 2009Q1

REPORT INFORMATION
  Report Type: 
  Country: None (occurrence: None)
  Receive Date: 20090217
  Receipt Date: 20090206
  Transmission Date: 20090719
  Serious: Yes (Other)
  Sender: FDA-Public Use
  Company Number: US-BAYER-200912691NA

PATIENT
  Age: 27 Year
  Sex: Female
  Weight: 56 kg

DRUGS (2)
  1. MIRENA [Suspect]
     Indication: CONTRACEPTION
     Route: 015
     Dates: start: 20080502
  2. SEASONELLE [Concomitant]
     Indication: DRUG USE FOR UNKNOWN INDICATION

REACTIONS (13)
  - ABDOMINAL PAIN LOWER [None]
  - AMENORRHOEA [None]
  - ANXIETY [None]
  - DEPRESSION [None]
  - DYSMENORRHOEA [None]
  - ENDOMETRIOSIS [None]
  - FIBROMYALGIA [None]
  - HEADACHE [None]
  - PELVIC PAIN [None]
  - RHEUMATOID ARTHRITIS [None]
  - VAGINAL HAEMORRHAGE [None]
  - VITAMIN B12 DEFICIENCY [None]
  - VULVOVAGINAL MYCOTIC INFECTION [None]
